FAERS Safety Report 19635703 (Version 1)
Quarter: 2021Q3

REPORT INFORMATION
  Report Type: Other
  Country: CA (occurrence: CA)
  Receive Date: 20210730
  Receipt Date: 20210730
  Transmission Date: 20211014
  Serious: Yes (Disabling, Other)
  Sender: FDA-Public Use
  Company Number: CA-APOTEX-2021AP023964

PATIENT
  Age: 72 Year
  Sex: Male

DRUGS (2)
  1. APO?DUTASTERIDE [Suspect]
     Active Substance: DUTASTERIDE
     Indication: MICTURITION DISORDER
     Dosage: UNK, QD
     Route: 048
  2. TAMSULOSIN [Concomitant]
     Active Substance: TAMSULOSIN
     Indication: PRODUCT USED FOR UNKNOWN INDICATION
     Dosage: UNK
     Route: 065

REACTIONS (3)
  - Genital hypoaesthesia [Not Recovered/Not Resolved]
  - Ejaculation failure [Not Recovered/Not Resolved]
  - Erectile dysfunction [Not Recovered/Not Resolved]
